FAERS Safety Report 5651734-2 (Version None)
Quarter: 2008Q1

REPORT INFORMATION
  Report Type: 
  Country: None (occurrence: None)
  Receive Date: 20080304
  Receipt Date: 20080222
  Transmission Date: 20080703
  Serious: Yes (Death)
  Sender: FDA-Public Use
  Company Number: L08-USA-00315-79

PATIENT
  Age: 29 Year
  Sex: Female

DRUGS (4)
  1. PROPRANOLOL [Suspect]
  2. GABAPENTIN [Suspect]
  3. BUPROPION HCL [Suspect]
  4. CLONAZEPAM [Suspect]

REACTIONS (2)
  - COMPLETED SUICIDE [None]
  - MULTIPLE DRUG OVERDOSE [None]
